FAERS Safety Report 17326135 (Version 2)
Quarter: 2020Q1

REPORT INFORMATION
  Report Type: Spontaneous
  Country: US (occurrence: US)
  Receive Date: 20200127
  Receipt Date: 20200227
  Transmission Date: 20200409
  Serious: Yes (Other)
  Sender: FDA-Public Use
  Company Number: US-PFIZER INC-2020034566

PATIENT
  Age: 70 Year
  Sex: Male
  Weight: 78.5 kg

DRUGS (4)
  1. ASA DONEPEZIL [Concomitant]
     Indication: DEMENTIA
     Dosage: 5 MG, UNK
     Dates: start: 2019
  2. TOVIAZ [Suspect]
     Active Substance: FESOTERODINE FUMARATE
     Indication: BLADDER DISORDER
     Dosage: 8 MG, 1X/DAY
     Dates: start: 201810
  3. FINASTERIDE. [Concomitant]
     Active Substance: FINASTERIDE
     Indication: PROSTATE INFECTION
     Dosage: UNK
     Dates: start: 2010
  4. ATORVASTATIN [Concomitant]
     Active Substance: ATORVASTATIN
     Indication: BLOOD CHOLESTEROL INCREASED
     Dosage: 20 MG, UNK
     Dates: start: 1991

REACTIONS (2)
  - Dementia [Not Recovered/Not Resolved]
  - Renal failure [Unknown]
